FAERS Safety Report 19122479 (Version 1)
Quarter: 2021Q2

REPORT INFORMATION
  Report Type: Spontaneous
  Country: US (occurrence: US)
  Receive Date: 20210412
  Receipt Date: 20210412
  Transmission Date: 20210717
  Serious: Yes (Life-Threatening, Other)
  Sender: FDA-Public Use
  Company Number: US-PFIZER INC-2021288677

PATIENT
  Age: 4 Year
  Sex: Male
  Weight: 20 kg

DRUGS (6)
  1. HALOTHANE. [Concomitant]
     Active Substance: HALOTHANE
     Indication: MECHANICAL VENTILATION
     Dosage: 1.5 %
  2. ATROPINE. [Concomitant]
     Active Substance: ATROPINE
     Dosage: 0.1 MG
  3. SUCCINYLCHOLINE CHLORIDE. [Suspect]
     Active Substance: SUCCINYLCHOLINE CHLORIDE
     Indication: ANAESTHESIA
     Dosage: 20 MG
  4. SUCCINYLCHOLINE CHLORIDE. [Suspect]
     Active Substance: SUCCINYLCHOLINE CHLORIDE
     Dosage: 20 MG
  5. OXYGEN. [Concomitant]
     Active Substance: OXYGEN
     Indication: MECHANICAL VENTILATION
     Dosage: UNK
  6. ATROPINE. [Concomitant]
     Active Substance: ATROPINE
     Dosage: 0.2 MG

REACTIONS (1)
  - Rhabdomyolysis [Recovered/Resolved]
